FAERS Safety Report 8052258-8 (Version None)
Quarter: 2012Q1

REPORT INFORMATION
  Report Type: 
  Country: None (occurrence: None)
  Receive Date: 20120118
  Receipt Date: 20120116
  Transmission Date: 20120608
  Serious: Yes (Other)
  Sender: FDA-Public Use
  Company Number: DE-JNJFOC-20111008427

PATIENT
  Sex: Male
  Weight: 96.5 kg

DRUGS (6)
  1. RITALIN [Suspect]
     Dosage: 15MG-10MG-0
     Route: 048
     Dates: start: 20110620, end: 20110630
  2. RITALIN [Suspect]
     Indication: DISTURBANCE IN SOCIAL BEHAVIOUR
     Dosage: 20MG-20MG-0
     Route: 048
     Dates: start: 20110705, end: 20110720
  3. RITALIN [Suspect]
     Dosage: 15MG-15MG-0
     Route: 048
     Dates: start: 20110701, end: 20110704
  4. RITALIN [Suspect]
     Route: 048
     Dates: start: 20110722, end: 20110724
  5. RITALIN [Suspect]
     Dosage: 20MG-25MG-0
     Route: 048
     Dates: start: 20110721, end: 20110721
  6. CONCERTA [Suspect]
     Indication: DISTURBANCE IN SOCIAL BEHAVIOUR
     Route: 048
     Dates: start: 20110725, end: 20110801

REACTIONS (8)
  - BLOOD CREATINE PHOSPHOKINASE MB INCREASED [None]
  - BLOOD BILIRUBIN UNCONJUGATED INCREASED [None]
  - BLOOD CREATINE PHOSPHOKINASE INCREASED [None]
  - ASPARTATE AMINOTRANSFERASE INCREASED [None]
  - LABORATORY TEST ABNORMAL [None]
  - HAEMATOCRIT DECREASED [None]
  - BLOOD ALKALINE PHOSPHATASE INCREASED [None]
  - BLOOD BILIRUBIN INCREASED [None]
